FAERS Safety Report 6175369-0 (Version None)
Quarter: 2009Q2

REPORT INFORMATION
  Report Type: 
  Country: None (occurrence: None)
  Receive Date: 20090430
  Receipt Date: 20090407
  Transmission Date: 20091009
  Serious: Yes (Hospitalization, Disabling, Other)
  Sender: FDA-Public Use
  Company Number: FI-MERCK-0904FIN00004

PATIENT
  Age: 55 Year
  Sex: Female

DRUGS (6)
  1. ZOCOR [Suspect]
     Route: 048
     Dates: end: 20070101
  2. ZOCOR [Suspect]
     Route: 048
     Dates: start: 20070901
  3. PODOPHYLLOTOXIN SEMISYNTHETIC GLYCOSIDES [Suspect]
     Indication: RHEUMATOID ARTHRITIS
     Route: 065
     Dates: start: 20060501
  4. RITUXIMAB [Concomitant]
     Route: 065
     Dates: start: 20070301, end: 20070401
  5. RITUXIMAB [Concomitant]
     Route: 065
     Dates: start: 20080401, end: 20080401
  6. AZATHIOPRINE [Concomitant]
     Indication: RHEUMATOID ARTHRITIS
     Route: 065
     Dates: start: 20001101

REACTIONS (2)
  - DRUG INTERACTION [None]
  - RHABDOMYOLYSIS [None]
